FAERS Safety Report 7280023-8 (Version None)
Quarter: 2011Q1

REPORT INFORMATION
  Report Type: 
  Country: None (occurrence: None)
  Receive Date: 20110208
  Receipt Date: 20110126
  Transmission Date: 20110831
  Serious: Yes (Hospitalization)
  Sender: FDA-Public Use
  Company Number: IT-ELI_LILLY_AND_COMPANY-EWC040639629

PATIENT
  Age: 80 Year
  Sex: Female

DRUGS (3)
  1. LASIX [Concomitant]
     Dosage: UNK, 3/D
     Route: 042
     Dates: start: 19940101
  2. FORTEO [Suspect]
     Indication: OSTEOPOROSIS
     Dosage: UNK, DAILY (1/D)
     Route: 058
     Dates: start: 20040605, end: 20040606
  3. ADALAT [Concomitant]
     Dosage: 30 MG, 2/D
     Route: 048
     Dates: start: 19940101

REACTIONS (1)
  - CHRONIC OBSTRUCTIVE PULMONARY DISEASE [None]
